FAERS Safety Report 10191346 (Version 1)
Quarter: 2014Q2

REPORT INFORMATION
  Report Type: Spontaneous
  Country: US (occurrence: None)
  Receive Date: 20140522
  Receipt Date: 20140522
  Transmission Date: 20141212
  Serious: Yes (Other)
  Sender: FDA-Public Use
  Company Number: None

PATIENT
  Age: 41 Year
  Sex: Female

DRUGS (2)
  1. DULOXETINE HCL DR CAPS 60 MG [Suspect]
     Indication: DEPRESSION
     Dosage: 2 CAPSULES DAILY, ONCE DAILY, TAKEN BY MOUTH
     Route: 048
     Dates: start: 20140228, end: 20140328
  2. DULOXETINE HCL DR CAPS 60 MG [Suspect]
     Indication: ANXIETY
     Dosage: 2 CAPSULES DAILY, ONCE DAILY, TAKEN BY MOUTH
     Route: 048
     Dates: start: 20140228, end: 20140328

REACTIONS (5)
  - Anxiety [None]
  - Nervousness [None]
  - Tachyphrenia [None]
  - Drug ineffective [None]
  - Product substitution issue [None]
